FAERS Safety Report 23823369 (Version 2)
Quarter: 2024Q2

REPORT INFORMATION
  Report Type: Spontaneous
  Country: US (occurrence: None)
  Receive Date: 20240507
  Receipt Date: 20240522
  Transmission Date: 20240717
  Serious: No
  Sender: FDA-Public Use
  Company Number: 2024A100934

PATIENT
  Age: 77 Year
  Sex: Female
  Weight: 70.3 kg

DRUGS (11)
  1. NEXIUM [Suspect]
     Active Substance: ESOMEPRAZOLE MAGNESIUM
     Route: 048
     Dates: start: 2024
  2. DUPIXENT [Suspect]
     Active Substance: DUPILUMAB
     Dates: start: 202212
  3. DUPIXENT [Suspect]
     Active Substance: DUPILUMAB
     Route: 058
  4. CHONDROITIN SULFATE (CHICKEN) [Concomitant]
     Active Substance: CHONDROITIN SULFATE (CHICKEN)
  5. GLUCOSAMINE HYDROCHLORIDE [Concomitant]
     Active Substance: GLUCOSAMINE HYDROCHLORIDE
  6. MANGANESE GLUCONATE [Concomitant]
     Active Substance: MANGANESE GLUCONATE
  7. SODIUM BORATE DECAHYDRATE (GLUCOSAMINE + CHONDORITIN) [Concomitant]
  8. HYDROXYZ]NE (HYDROXYZINE) [Concomitant]
  9. VITAMINS NOS (MULTIVITAMIN IVITAMINS NOS]) [Concomitant]
  10. TRIAMCINOLONE ACETONIDE (TRIAMCINOLONE ACET0NIDE) [Concomitant]
  11. METHYLPREDNISOLONE [Concomitant]
     Active Substance: METHYLPREDNISOLONE

REACTIONS (14)
  - Injection site irritation [Recovered/Resolved]
  - Injection site rash [Not Recovered/Not Resolved]
  - Injection site erythema [Not Recovered/Not Resolved]
  - Fatigue [Not Recovered/Not Resolved]
  - Rash macular [Unknown]
  - Diarrhoea [Not Recovered/Not Resolved]
  - Dermatitis allergic [Unknown]
  - Nausea [Not Recovered/Not Resolved]
  - Vomiting [Not Recovered/Not Resolved]
  - Erythema [Unknown]
  - Pruritus [Unknown]
  - Skin exfoliation [Recovered/Resolved]
  - Swelling face [Unknown]
  - Rash [Not Recovered/Not Resolved]

NARRATIVE: CASE EVENT DATE: 20221201
